FAERS Safety Report 25052126 (Version 1)
Quarter: 2025Q1

REPORT INFORMATION
  Report Type: Spontaneous
  Country: US (occurrence: US)
  Receive Date: 20250307
  Receipt Date: 20250307
  Transmission Date: 20250409
  Serious: No
  Sender: SAMSUNG BIOEPIS
  Company Number: US-SAMSUNG BIOEPIS-SB-2024-37126

PATIENT
  Age: 52 Year
  Sex: Female

DRUGS (2)
  1. HADLIMA [Suspect]
     Active Substance: ADALIMUMAB-BWWD
     Indication: Product used for unknown indication
     Route: 058
     Dates: start: 202410
  2. HADLIMA [Suspect]
     Active Substance: ADALIMUMAB-BWWD
     Route: 058
     Dates: start: 202410

REACTIONS (6)
  - Injection site bruising [Recovered/Resolved]
  - Device leakage [Recovered/Resolved]
  - Accidental exposure to product [Recovered/Resolved]
  - Exposure via skin contact [Recovered/Resolved]
  - Device difficult to use [Recovered/Resolved]
  - Drug delivery system malfunction [Recovered/Resolved]

NARRATIVE: CASE EVENT DATE: 20241001
